FAERS Safety Report 4757616-2 (Version None)
Quarter: 2005Q3

REPORT INFORMATION
  Report Type: 
  Country: None (occurrence: None)
  Receive Date: 20050830
  Receipt Date: 20050818
  Transmission Date: 20060218
  Serious: Yes (Other)
  Sender: FDA-Public Use
  Company Number: 2005117403

PATIENT

DRUGS (2)
  1. ATARAX [Suspect]
     Dosage: INTRAVENOUS
     Route: 042
  2. SODIUM CHLORIDE 0.9% [Concomitant]

REACTIONS (2)
  - HEADACHE [None]
  - VOCAL CORD PARALYSIS [None]
